FAERS Safety Report 7810801-5 (Version None)
Quarter: 2011Q4

REPORT INFORMATION
  Report Type: 
  Country: None (occurrence: None)
  Receive Date: 20111012
  Receipt Date: 20111012
  Transmission Date: 20120403
  Serious: Yes (Other)
  Sender: FDA-Public Use
  Company Number: None

PATIENT
  Sex: Male
  Weight: 64.184 kg

DRUGS (1)
  1. BOTANIC CHOICE - GRAY STOP PLUS 1000 MG BIOTIN + VIT D, ALSO ASHWAGAND [Suspect]

REACTIONS (5)
  - DEAFNESS [None]
  - ANOSMIA [None]
  - APHASIA [None]
  - VOMITING [None]
  - ABASIA [None]
